FAERS Safety Report 10058786 (Version 2)
Quarter: 2014Q2

REPORT INFORMATION
  Report Type: Spontaneous
  Country: AU (occurrence: AU)
  Receive Date: 20140404
  Receipt Date: 20140430
  Transmission Date: 20141212
  Serious: Yes (Hospitalization)
  Sender: FDA-Public Use
  Company Number: AU-ASTRAZENECA-2014SE21431

PATIENT
  Sex: Female

DRUGS (2)
  1. SEROQUEL [Suspect]
     Route: 048
  2. ZELDOX [Suspect]
     Route: 065
     Dates: start: 2013

REACTIONS (5)
  - Neuroleptic malignant syndrome [Unknown]
  - Muscle spasticity [Unknown]
  - Confusional state [Unknown]
  - Cognitive disorder [Not Recovered/Not Resolved]
  - Therapy cessation [Unknown]
